FAERS Safety Report 11820705 (Version 1)
Quarter: 2015Q4

REPORT INFORMATION
  Report Type: Spontaneous
  Country: US (occurrence: US)
  Receive Date: 20151210
  Receipt Date: 20151210
  Transmission Date: 20160305
  Serious: Yes (Hospitalization)
  Sender: FDA-Public Use
  Company Number: US-JNJFOC-20150622747

PATIENT
  Age: 83 Year
  Sex: Female

DRUGS (26)
  1. IMBRUVICA [Suspect]
     Active Substance: IBRUTINIB
     Indication: CHRONIC LYMPHOCYTIC LEUKAEMIA
     Route: 048
     Dates: start: 201409
  2. ZETIA [Concomitant]
     Active Substance: EZETIMIBE
  3. LIDOCAINE VISCOUS [Concomitant]
     Active Substance: LIDOCAINE HYDROCHLORIDE
  4. MUCINEX [Concomitant]
     Active Substance: GUAIFENESIN
  5. METFORMIN [Concomitant]
     Active Substance: METFORMIN HYDROCHLORIDE
  6. DUONEB [Concomitant]
     Active Substance: ALBUTEROL SULFATE\IPRATROPIUM BROMIDE
     Dosage: 0.5 MG-3 MG (2.5MG BASE)/3 ML
  7. FOLIC ACID. [Concomitant]
     Active Substance: FOLIC ACID
  8. PROTONIX [Concomitant]
     Active Substance: PANTOPRAZOLE SODIUM
  9. KLOR-CON [Concomitant]
     Active Substance: POTASSIUM CHLORIDE
  10. COLACE [Concomitant]
     Active Substance: DOCUSATE SODIUM
  11. COMPAZINE [Concomitant]
     Active Substance: PROCHLORPERAZINE MALEATE
  12. SOY ISOFLAVONES [Concomitant]
     Active Substance: SOY ISOFLAVONES
     Dosage: 500 MG-200 UNIT-45 MG
  13. POLYETHYLENE/GLYCOL [Concomitant]
     Route: 061
  14. AROMASIN [Concomitant]
     Active Substance: EXEMESTANE
     Dosage: 25 UNK
  15. ACETAMINOPHEN. [Concomitant]
     Active Substance: ACETAMINOPHEN
  16. MACRODANTIN [Concomitant]
     Active Substance: NITROFURANTOIN
  17. PULMICORT TURBUHALER [Concomitant]
     Active Substance: BUDESONIDE
  18. ZOCOR [Concomitant]
     Active Substance: SIMVASTATIN
  19. ASPIRIN. [Concomitant]
     Active Substance: ASPIRIN
  20. TOPROL XL [Concomitant]
     Active Substance: METOPROLOL SUCCINATE
  21. FLONASE [Concomitant]
     Active Substance: FLUTICASONE PROPIONATE
     Route: 045
  22. VITAMIN D [Concomitant]
     Active Substance: CHOLECALCIFEROL
     Dosage: 2000 UNIT
  23. LASIX [Concomitant]
     Active Substance: FUROSEMIDE
  24. PLAVIX [Concomitant]
     Active Substance: CLOPIDOGREL BISULFATE
  25. SYNTHROID [Concomitant]
     Active Substance: LEVOTHYROXINE SODIUM
  26. LEVSIN [Concomitant]
     Active Substance: HYOSCYAMINE SULFATE

REACTIONS (10)
  - Asthenia [Not Recovered/Not Resolved]
  - Anaemia [Unknown]
  - Oedema peripheral [Recovering/Resolving]
  - Confusional state [Recovering/Resolving]
  - Staphylococcal sepsis [Recovered/Resolved]
  - Renal failure [Unknown]
  - Platelet count decreased [Unknown]
  - Dizziness [Unknown]
  - Escherichia urinary tract infection [Recovered/Resolved]
  - Hypogammaglobulinaemia [Unknown]

NARRATIVE: CASE EVENT DATE: 2015
